FAERS Safety Report 7134734-5 (Version None)
Quarter: 2010Q4

REPORT INFORMATION
  Report Type: 
  Country: None (occurrence: None)
  Receive Date: 20101203
  Receipt Date: 20101123
  Transmission Date: 20110411
  Serious: Yes (Death)
  Sender: FDA-Public Use
  Company Number: ES-ROCHE-737795

PATIENT
  Sex: Female
  Weight: 53 kg

DRUGS (10)
  1. TRASTUZUMAB [Suspect]
     Indication: BREAST CANCER
     Route: 065
     Dates: end: 20100602
  2. CAPECITABINE [Suspect]
     Indication: BREAST CANCER
     Route: 065
     Dates: start: 20090803, end: 20100507
  3. DOCETAXEL [Suspect]
     Indication: BREAST CANCER
     Route: 065
     Dates: end: 20090416
  4. CYCLOPHOSPHAMIDE [Suspect]
     Indication: BREAST CANCER
     Route: 065
     Dates: end: 20090416
  5. EPIRUBICIN [Suspect]
     Indication: BREAST CANCER
     Route: 065
     Dates: end: 20090416
  6. FLUOROURACIL [Suspect]
     Indication: BREAST CANCER
     Route: 065
     Dates: end: 20090416
  7. LAPATINIB [Suspect]
     Indication: BREAST CANCER
     Route: 065
     Dates: start: 20090803, end: 20100507
  8. VINORELBINE [Suspect]
     Indication: BREAST CANCER
     Route: 065
     Dates: start: 20100525, end: 20100602
  9. FENTANIL [Concomitant]
     Indication: BONE PAIN
     Route: 062
     Dates: start: 20100415, end: 20100613
  10. OXYCODONE HCL [Concomitant]
     Indication: BONE PAIN
     Route: 048
     Dates: start: 20100507, end: 20100613

REACTIONS (2)
  - BREAST CANCER FEMALE [None]
  - MALIGNANT NEOPLASM PROGRESSION [None]
